FAERS Safety Report 8771722 (Version 1)
Quarter: 2012Q4

REPORT INFORMATION
  Report Type: 
  Country: US (occurrence: US)
  Receive Date: 20120905
  Receipt Date: 20120905
  Transmission Date: 20130627
  Serious: No
  Sender: FDA-Public Use
  Company Number: US-BAYER-2012-091207

PATIENT
  Age: 56 Year
  Sex: Female
  Weight: 86.17 kg

DRUGS (6)
  1. ALEVE SMOOTH GELS [Suspect]
     Indication: ARTHRITIS
     Dosage: 2 DF, BID
     Route: 048
     Dates: start: 201206
  2. HUMIRA [Concomitant]
  3. SIMVASTATIN [Concomitant]
  4. METHOTREXATE [Concomitant]
  5. COQ10 [Concomitant]
  6. KRILL OIL [Concomitant]

REACTIONS (1)
  - No adverse event [None]
